FAERS Safety Report 5872873-7 (Version None)
Quarter: 2008Q3

REPORT INFORMATION
  Report Type: 
  Country: None (occurrence: None)
  Receive Date: 20080903
  Receipt Date: 20080821
  Transmission Date: 20090109
  Serious: Yes (Hospitalization)
  Sender: FDA-Public Use
  Company Number: 8036272

PATIENT
  Age: 21 Day
  Sex: Male
  Weight: 3.51 kg

DRUGS (2)
  1. KEPPRA [Suspect]
     Dosage: 500 MG 2/D TRP
     Route: 064
     Dates: end: 20080725
  2. KEPPRA [Suspect]
     Dosage: 500 MG 2/D TRM
     Route: 063
     Dates: end: 20080815

REACTIONS (5)
  - DRUG EXPOSURE VIA BREAST MILK [None]
  - JAUNDICE NEONATAL [None]
  - LABORATORY TEST ABNORMAL [None]
  - LIVER DISORDER [None]
  - MATERNAL DRUGS AFFECTING FOETUS [None]
